FAERS Safety Report 24325237 (Version 1)
Quarter: 2024Q3

REPORT INFORMATION
  Report Type: Spontaneous
  Country: US (occurrence: US)
  Receive Date: 20240916
  Receipt Date: 20240916
  Transmission Date: 20241016
  Serious: Yes (Hospitalization, Other)
  Sender: JOHNSON AND JOHNSON
  Company Number: US-JNJFOC-20240920225

PATIENT
  Age: 68 Year
  Sex: Female
  Weight: 90.2 kg

DRUGS (32)
  1. OPSUMIT [Suspect]
     Active Substance: MACITENTAN
     Indication: Product used for unknown indication
     Route: 048
  2. REMODULIN [Suspect]
     Active Substance: TREPROSTINIL
     Indication: Pulmonary arterial hypertension
     Dosage: CONCENTRATION 10 MG/ML
     Route: 058
     Dates: start: 20230427
  3. REMODULIN [Suspect]
     Active Substance: TREPROSTINIL
     Dosage: SELF-FILL WITH 3ML PER CASSETTE; RATE 46MCL PER HOUR
     Route: 058
  4. ARANESP [Concomitant]
     Active Substance: DARBEPOETIN ALFA
  5. FUROSEMIDE [Concomitant]
     Active Substance: FUROSEMIDE
  6. FOLIC ACID [Concomitant]
     Active Substance: FOLIC ACID
  7. PANTOPRAZOLE SODIUM [Concomitant]
     Active Substance: PANTOPRAZOLE SODIUM
  8. KETAMINE HYDROCHLORIDE [Concomitant]
     Active Substance: KETAMINE HYDROCHLORIDE
  9. LECITHINE [Concomitant]
  10. ATORVASTATIN CALCIUM [Concomitant]
     Active Substance: ATORVASTATIN CALCIUM
  11. POTASSIUM [Concomitant]
     Active Substance: POTASSIUM
  12. SILDENAFIL CITRATE [Concomitant]
     Active Substance: SILDENAFIL CITRATE
  13. ZINC [Concomitant]
     Active Substance: ZINC
  14. FLUTICASONE PROPIONATE [Concomitant]
     Active Substance: FLUTICASONE PROPIONATE
  15. CLONIDINE [Concomitant]
     Active Substance: CLONIDINE
  16. KETOPROFEN [Concomitant]
     Active Substance: KETOPROFEN
  17. LEVETIRACETAM [Concomitant]
     Active Substance: LEVETIRACETAM
  18. OXYGEN [Concomitant]
     Active Substance: OXYGEN
  19. LIDOCAINE HYDROCHLORIDE [Concomitant]
     Active Substance: LIDOCAINE HYDROCHLORIDE
  20. FARXIGA [Concomitant]
     Active Substance: DAPAGLIFLOZIN PROPANEDIOL
  21. PROBIOTICS NOS [Concomitant]
     Active Substance: PROBIOTICS NOS
  22. VITAMIN B12 [Concomitant]
     Active Substance: CYANOCOBALAMIN
  23. ACETAMINOPHEN [Concomitant]
     Active Substance: ACETAMINOPHEN
  24. VITAMIN D3 [Concomitant]
     Active Substance: CHOLECALCIFEROL
  25. AMITRIPTYLINE [Concomitant]
     Active Substance: AMITRIPTYLINE
  26. GABAPENTIN [Concomitant]
     Active Substance: GABAPENTIN
  27. POLOXAMER [Concomitant]
     Active Substance: POLOXAMER
  28. ZYRTEC [Concomitant]
     Active Substance: CETIRIZINE HYDROCHLORIDE
  29. METFORMIN [Concomitant]
     Active Substance: METFORMIN HYDROCHLORIDE
  30. CALCIUM MAGNESIUM [CALCIUM CITRATE;MAGNESIUM CITRATE] [Concomitant]
  31. VITAMIN C [Concomitant]
     Active Substance: ASCORBIC ACID
  32. SOTATERCEPT [Concomitant]
     Active Substance: SOTATERCEPT

REACTIONS (16)
  - Pulmonary arterial hypertension [Unknown]
  - Haemoglobin decreased [Unknown]
  - Pericardial effusion [Unknown]
  - Blood pressure systolic increased [Unknown]
  - Hypersensitivity [Unknown]
  - Cough [Unknown]
  - Hypersomnia [Unknown]
  - Gait disturbance [Unknown]
  - Back pain [Unknown]
  - Anxiety [Unknown]
  - Decreased activity [Unknown]
  - Skin discolouration [Unknown]
  - Peripheral swelling [Unknown]
  - Dry skin [Unknown]
  - Weight decreased [Unknown]
  - Illness [Unknown]
